FAERS Safety Report 24168562 (Version 1)
Quarter: 2024Q3

REPORT INFORMATION
  Report Type: Spontaneous
  Country: CN (occurrence: None)
  Receive Date: 20240802
  Receipt Date: 20240802
  Transmission Date: 20241016
  Serious: Yes (Other)
  Sender: ASTRAZENECA
  Company Number: 2024A173921

PATIENT
  Age: 14220 Day
  Sex: Female
  Weight: 77 kg

DRUGS (1)
  1. DAPAGLIFLOZIN [Suspect]
     Active Substance: DAPAGLIFLOZIN
     Indication: Diabetes mellitus
     Route: 048
     Dates: start: 20240630, end: 20240702

REACTIONS (7)
  - Ketosis [Recovering/Resolving]
  - Diabetic ketoacidosis [Unknown]
  - Dizziness [Unknown]
  - Decreased appetite [Unknown]
  - Nausea [Unknown]
  - Vomiting [Unknown]
  - Discomfort [Unknown]

NARRATIVE: CASE EVENT DATE: 20240702
